FAERS Safety Report 17291564 (Version 1)
Quarter: 2020Q1

REPORT INFORMATION
  Report Type: Spontaneous
  Country: SE (occurrence: SE)
  Receive Date: 20200121
  Receipt Date: 20200121
  Transmission Date: 20200409
  Serious: Yes (Other)
  Sender: FDA-Public Use
  Company Number: SE-TEVA-2020-SE-1170226

PATIENT
  Age: 84 Year
  Sex: Male

DRUGS (18)
  1. PRADAXA 110 MG KAPSEL, HARD [Concomitant]
     Dosage: 220MG PER DAY
     Dates: start: 20190506
  2. BUVENTOL EASYHALER 100 MIKROGRAM/DOS INHALATIONSPULVER [Concomitant]
     Dosage: 1-2 DOSES VB, MAX 8 DOSES/DAY
     Dates: start: 20171214
  3. CEFADROXIL MONOHYDRATE [Concomitant]
     Active Substance: CEFADROXIL
     Dosage: 3000MG PER DAY
     Dates: start: 20191209
  4. BISOPROLOL [Suspect]
     Active Substance: BISOPROLOL
     Route: 065
  5. FLUTIFORM 125 MIKROGRAM/5 MIKROGRAM/PUFF INHALATIONSSPRAY, SUSPENSION [Concomitant]
     Dosage: 2 DOSAGE FORMS PER DAY
     Route: 055
     Dates: start: 20190906
  6. ACETYLCYSTEINE. [Concomitant]
     Active Substance: ACETYLCYSTEINE
     Dosage: 1 VB 2 TIMES/DAY
     Dates: start: 20190814
  7. EKLIRA GENUAIR 322 MIKROGRAM INHALATIONSPULVER [Concomitant]
     Dosage: 2 DOSAGE FORMS PER DAY
     Route: 055
     Dates: start: 20191023
  8. ATORVASTATIN [Concomitant]
     Active Substance: ATORVASTATIN
     Dosage: 20MG PER DAY
     Dates: start: 20171214
  9. LEVAXIN 25 MIKROGRAM TABLETT [Concomitant]
     Dosage: 25MICROGRAM PER DAY
     Dates: start: 20191023
  10. MIRTAZAPINE. [Concomitant]
     Active Substance: MIRTAZAPINE
     Dosage: 30MG PER DAY
     Dates: start: 20191023
  11. CANODERM 5 % KRAM [Concomitant]
     Dates: start: 20190503
  12. LOCOID 0,1 % SALVA [Concomitant]
     Dates: start: 20181108
  13. FURIX 40 MG TABLETT [Concomitant]
     Dosage: 49MG PER DAY
     Dates: start: 20190815
  14. LYRICA 75 MG KAPSEL, HARD [Concomitant]
     Dosage: 225MG PER DAY
     Dates: start: 20171214
  15. VALSARTAN. [Concomitant]
     Active Substance: VALSARTAN
     Dosage: 80MG PER DAY
     Dates: start: 20171212
  16. FOLACIN 1 MG TABLETT [Concomitant]
     Dosage: 1MG PER DAY
     Dates: start: 20171215
  17. ESOMEPRAZOLE. [Concomitant]
     Active Substance: ESOMEPRAZOLE MAGNESIUM
     Dosage: 40MG PER DAY
     Dates: start: 20190907
  18. GLYTRIN 0,4 MG/DOS SUBLINGUALSPRAY [Concomitant]
     Dosage: 1-2 SPRAYS VB, MAX 8/DAY
     Dates: start: 20171214

REACTIONS (1)
  - Cardiac arrest [Recovered/Resolved]

NARRATIVE: CASE EVENT DATE: 20191209
